FAERS Safety Report 11115011 (Version 1)
Quarter: 2015Q2

REPORT INFORMATION
  Report Type: Spontaneous
  Country: US (occurrence: US)
  Receive Date: 20150515
  Receipt Date: 20150515
  Transmission Date: 20150821
  Serious: No
  Sender: FDA-Public Use
  Company Number: US-BIOGENIDEC-2015BI064073

PATIENT
  Age: 47 Year
  Sex: Female

DRUGS (8)
  1. QUETIAPINE FUMARATE. [Concomitant]
     Active Substance: QUETIAPINE FUMARATE
  2. CLONAZEPAM. [Concomitant]
     Active Substance: CLONAZEPAM
  3. RANITIDINE HCI [Concomitant]
  4. MODAFINIL. [Concomitant]
     Active Substance: MODAFINIL
  5. TECFIDERA [Suspect]
     Active Substance: DIMETHYL FUMARATE
     Indication: MULTIPLE SCLEROSIS
     Route: 048
     Dates: start: 20150303
  6. ALPHAGAN P [Concomitant]
     Active Substance: BRIMONIDINE TARTRATE
  7. VOLTAREN [Concomitant]
     Active Substance: DICLOFENAC SODIUM
  8. VESICARE [Concomitant]
     Active Substance: SOLIFENACIN SUCCINATE

REACTIONS (1)
  - Salivary hypersecretion [Not Recovered/Not Resolved]
